FAERS Safety Report 6638556-0 (Version None)
Quarter: 2010Q1

REPORT INFORMATION
  Report Type: 
  Country: None (occurrence: None)
  Receive Date: 20100316
  Receipt Date: 20100316
  Transmission Date: 20100710
  Serious: Yes (Other)
  Sender: FDA-Public Use
  Company Number: None

PATIENT
  Age: 39 Year
  Sex: Female
  Weight: 65.7716 kg

DRUGS (1)
  1. MIRENA [Suspect]
     Indication: INTRA-UTERINE CONTRACEPTIVE DEVICE
     Dosage: UNKNOWN ONCE INTRA-UTERINE
     Route: 015
     Dates: start: 20090415, end: 20100106

REACTIONS (4)
  - ASTHENIA [None]
  - CHEST DISCOMFORT [None]
  - DYSPNOEA [None]
  - MEDICAL DEVICE COMPLICATION [None]
